FAERS Safety Report 9913548 (Version 1)
Quarter: 2014Q1

REPORT INFORMATION
  Report Type: Spontaneous
  Country: IT (occurrence: None)
  Receive Date: 20140218
  Receipt Date: 20140218
  Transmission Date: 20141002
  Serious: Yes (Hospitalization)
  Sender: FDA-Public Use
  Company Number: FK201400494

PATIENT
  Age: 70 Year
  Sex: Female
  Weight: 73 kg

DRUGS (3)
  1. IRINOTECAN [Suspect]
     Indication: PANCREATIC CARCINOMA
     Dates: start: 20130918, end: 20131122
  2. OXALIPLATIN [Suspect]
     Indication: PANCREATIC CARCINOMA
     Dosage: BODY SURFACE
     Dates: start: 20130918, end: 20131111
  3. FLUOROURACIL [Suspect]
     Indication: PANCREATIC CARCINOMA
     Dosage: BODY SURFACE
     Dates: start: 20130918, end: 20131122

REACTIONS (1)
  - Subcutaneous abscess [None]
